FAERS Safety Report 7050106-6 (Version None)
Quarter: 2010Q4

REPORT INFORMATION
  Report Type: 
  Country: None (occurrence: None)
  Receive Date: 20101018
  Receipt Date: 20101014
  Transmission Date: 20110411
  Serious: Yes (Death)
  Sender: FDA-Public Use
  Company Number: NL-BRISTOL-MYERS SQUIBB COMPANY-15335599

PATIENT
  Age: 44 Year
  Sex: Female
  Weight: 82 kg

DRUGS (3)
  1. ABILIFY [Suspect]
     Indication: PSYCHOTIC DISORDER
     Dates: start: 20070101
  2. STEDIRIL [Suspect]
     Dosage: 1DF-30 DRAGEES 1/1 CYCLICAL
     Dates: start: 20070101
  3. DYTENZIDE [Concomitant]
     Indication: HYPERTENSION
     Dosage: 1DF-50/25 TABLET
     Dates: start: 20091101

REACTIONS (1)
  - SUDDEN CARDIAC DEATH [None]
